FAERS Safety Report 23746210 (Version 1)
Quarter: 2024Q2

REPORT INFORMATION
  Report Type: Spontaneous
  Country: US (occurrence: None)
  Receive Date: 20240416
  Receipt Date: 20240416
  Transmission Date: 20240716
  Serious: No
  Sender: FDA-Public Use
  Company Number: US-ROCHE-3545150

PATIENT
  Age: 55 Year
  Sex: Male
  Weight: 102.15 kg

DRUGS (1)
  1. OCREVUS [Suspect]
     Active Substance: OCRELIZUMAB
     Indication: Clinically isolated syndrome
     Dosage: HIS MOST RECENT INFUSION ON OCT/2023
     Route: 042
     Dates: start: 202304

REACTIONS (4)
  - Diarrhoea [Recovered/Resolved]
  - Adenovirus infection [Unknown]
  - Pancreatic failure [Unknown]
  - Off label use [Unknown]

NARRATIVE: CASE EVENT DATE: 20231201
